FAERS Safety Report 4545742-2 (Version None)
Quarter: 2005Q1

REPORT INFORMATION
  Report Type: 
  Country: None (occurrence: None)
  Receive Date: 20050103
  Receipt Date: 20041209
  Transmission Date: 20050727
  Serious: Yes (Hospitalization, Other)
  Sender: FDA-Public Use
  Company Number: US_0412109076

PATIENT
  Age: 58 Year
  Sex: Male
  Weight: 74 kg

DRUGS (3)
  1. HUMALOG [Suspect]
     Indication: DIABETES MELLITUS
  2. HUMULIN N [Suspect]
     Indication: DIABETES MELLITUS
     Dosage: 100 U DAY
  3. NOVOLIN 70/30 [Concomitant]

REACTIONS (5)
  - DIABETIC COMPLICATION [None]
  - DIABETIC NEUROPATHY [None]
  - LEG AMPUTATION [None]
  - RENAL TRANSPLANT [None]
  - RETINAL HAEMORRHAGE [None]
